FAERS Safety Report 18438524 (Version 5)
Quarter: 2021Q1

REPORT INFORMATION
  Report Type: Report from Study
  Country: US (occurrence: US)
  Receive Date: 20201028
  Receipt Date: 20210212
  Transmission Date: 20210419
  Serious: Yes (Hospitalization)
  Sender: FDA-Public Use
  Company Number: US-BIOGEN-2020BI00936677

PATIENT
  Sex: Female

DRUGS (3)
  1. TYSABRI [Suspect]
     Active Substance: NATALIZUMAB
     Dosage: INFUSED OVER 1 HOUR
     Route: 042
  2. TYSABRI [Suspect]
     Active Substance: NATALIZUMAB
     Indication: MULTIPLE SCLEROSIS
     Route: 065
     Dates: start: 20081219
  3. TYSABRI [Suspect]
     Active Substance: NATALIZUMAB
     Dosage: INFUSED OVER 1 HOUR
     Route: 042
     Dates: start: 20081219

REACTIONS (5)
  - Fatigue [Not Recovered/Not Resolved]
  - Pituitary tumour [Recovered/Resolved]
  - Post procedural complication [Recovered/Resolved]
  - Memory impairment [Not Recovered/Not Resolved]
  - Hypothalamo-pituitary disorder [Unknown]

NARRATIVE: CASE EVENT DATE: 2020
